FAERS Safety Report 6169439-0 (Version None)
Quarter: 2009Q2

REPORT INFORMATION
  Report Type: 
  Country: None (occurrence: None)
  Receive Date: 20090428
  Receipt Date: 20090417
  Transmission Date: 20091009
  Serious: Yes (Other)
  Sender: FDA-Public Use
  Company Number: PHHY2009JP13595

PATIENT
  Age: 73 Year
  Sex: Female
  Weight: 52.6 kg

DRUGS (13)
  1. CYCLOSPORINE [Suspect]
     Indication: PYODERMA GANGRENOSUM
     Dosage: 250 MG/DAY
     Dates: start: 20060801, end: 20060901
  2. CYCLOSPORINE [Suspect]
     Dosage: 100 MG/DAY
     Dates: start: 20061201, end: 20070101
  3. METHOTREXATE [Suspect]
     Indication: PYODERMA GANGRENOSUM
     Dosage: 4 MG
     Dates: start: 20061001, end: 20061101
  4. METHOTREXATE [Suspect]
     Dosage: 6 MG/DAY
     Dates: start: 20061101, end: 20061201
  5. PREDNISOLONE [Concomitant]
     Indication: PYODERMA GANGRENOSUM
     Dosage: 5 MG/WEEK
  6. PREDNISOLONE [Concomitant]
     Dosage: 20 MG
     Dates: start: 20060401, end: 20060801
  7. BETAMETHASONE [Concomitant]
     Indication: PYODERMA GANGRENOSUM
     Dosage: 4 MG
     Dates: start: 20060801
  8. BETAMETHASONE [Concomitant]
     Dosage: 2 MG
  9. MINOCYCLINE HCL [Concomitant]
  10. COLCHICINE [Concomitant]
  11. POTASSIUM IODIDE [Concomitant]
  12. DIAMINO DIPHENYLSULFONE [Concomitant]
  13. LECTISOL [Concomitant]

REACTIONS (2)
  - BONE MARROW FAILURE [None]
  - DIARRHOEA [None]
